FAERS Safety Report 13391081 (Version 1)
Quarter: 2017Q1

REPORT INFORMATION
  Report Type: Spontaneous
  Country: US (occurrence: US)
  Receive Date: 20170331
  Receipt Date: 20170331
  Transmission Date: 20170429
  Serious: No
  Sender: FDA-Public Use
  Company Number: US-ASTRAZENECA-2017SE29902

PATIENT
  Age: 38 Year
  Sex: Male
  Weight: 113.3 kg

DRUGS (1)
  1. NEXIUM [Suspect]
     Active Substance: ESOMEPRAZOLE MAGNESIUM
     Indication: PEPTIC ULCER
     Route: 048

REACTIONS (3)
  - Blood chromogranin A increased [Unknown]
  - Product use issue [Unknown]
  - Blood gastrin increased [Unknown]
